FAERS Safety Report 4429983-0 (Version None)
Quarter: 2004Q3

REPORT INFORMATION
  Report Type: 
  Country: None (occurrence: None)
  Receive Date: 20040818
  Receipt Date: 20040803
  Transmission Date: 20050211
  Serious: Yes (Hospitalization, Other)
  Sender: FDA-Public Use
  Company Number: 2004S1001751

PATIENT
  Age: 72 Year
  Sex: Female

DRUGS (5)
  1. DIAZEPAM [Suspect]
     Indication: MUSCLE SPASMS
     Dosage: 10MG BID ORAL
     Route: 048
     Dates: start: 20010101, end: 20030505
  2. DIAZEPAM [Suspect]
     Indication: MUSCLE SPASMS
     Dosage: 10MG BID ORAL
     Route: 048
     Dates: start: 20030509
  3. DIPHENOXYLATE/ATROPINE SULFATE [Concomitant]
  4. ATENOLOL [Concomitant]
  5. ACETAMINOPHEN [Concomitant]

REACTIONS (3)
  - DRUG WITHDRAWAL CONVULSIONS [None]
  - TRANSIENT ISCHAEMIC ATTACK [None]
  - VICTIM OF ABUSE [None]
